FAERS Safety Report 4283222-2 (Version None)
Quarter: 2004Q1

REPORT INFORMATION
  Report Type: 
  Country: None (occurrence: None)
  Receive Date: 20040129
  Receipt Date: 20040121
  Transmission Date: 20041129
  Serious: Yes (Life-Threatening, Hospitalization)
  Sender: FDA-Public Use
  Company Number: 2004SE00305

PATIENT
  Age: 27 Year
  Sex: Female

DRUGS (3)
  1. NOLVADEX [Suspect]
     Indication: POLYCYSTIC OVARIES
     Dosage: 10 MG DAILY PO
     Route: 048
     Dates: end: 20030921
  2. WINSTROL [Suspect]
     Indication: MUSCULOSKELETAL DISORDER
     Dosage: 2 MG. LONG TERM TREATMENT
     Dates: end: 20030921
  3. ALDACTONE [Suspect]
     Indication: OBESITY
     Dosage: LONG TERM TREATMENT
     Dates: end: 20030921

REACTIONS (3)
  - HEPATIC ENZYME INCREASED [None]
  - PAIN IN EXTREMITY [None]
  - RHABDOMYOLYSIS [None]
